FAERS Safety Report 7079718-0 (Version None)
Quarter: 2010Q4

REPORT INFORMATION
  Report Type: 
  Country: None (occurrence: None)
  Receive Date: 20101102
  Receipt Date: 20101027
  Transmission Date: 20110411
  Serious: Yes (Hospitalization, Other)
  Sender: FDA-Public Use
  Company Number: PHHY2009CA52064

PATIENT
  Sex: Female

DRUGS (3)
  1. SANDOSTATIN LAR [Suspect]
     Indication: CARCINOID TUMOUR
     Dosage: 30 MG EVERY 4 WEEKS
     Route: 030
     Dates: start: 20090805
  2. ANTIBIOTICS [Concomitant]
  3. IRON [Concomitant]

REACTIONS (12)
  - ABDOMINAL INFECTION [None]
  - CONTUSION [None]
  - EPISTAXIS [None]
  - INJECTION SITE DISCOLOURATION [None]
  - INJECTION SITE HAEMATOMA [None]
  - INJECTION SITE OEDEMA [None]
  - INJECTION SITE SCAB [None]
  - MALAISE [None]
  - MALIGNANT TUMOUR EXCISION [None]
  - MELANOMA RECURRENT [None]
  - METASTASES TO CENTRAL NERVOUS SYSTEM [None]
  - WOUND INFECTION [None]
